FAERS Safety Report 5204669-3 (Version None)
Quarter: 2007Q1

REPORT INFORMATION
  Report Type: 
  Country: None (occurrence: None)
  Receive Date: 20070110
  Receipt Date: 20060612
  Transmission Date: 20070707
  Serious: No
  Sender: FDA-Public Use
  Company Number: US-BRISTOL-MYERS SQUIBB COMPANY-13408679

PATIENT
  Age: 12 Year
  Sex: Female

DRUGS (1)
  1. ABILIFY [Suspect]
     Indication: OBSESSIVE-COMPULSIVE DISORDER
     Dates: start: 20060301, end: 20060322

REACTIONS (2)
  - EXTRAPYRAMIDAL DISORDER [None]
  - MUSCULOSKELETAL STIFFNESS [None]
